FAERS Safety Report 5034003-3 (Version None)
Quarter: 2006Q2

REPORT INFORMATION
  Report Type: 
  Country: None (occurrence: None)
  Receive Date: 20060626
  Receipt Date: 20060616
  Transmission Date: 20061013
  Serious: Yes (Hospitalization, Other)
  Sender: FDA-Public Use
  Company Number: PHRM2006FR01818

PATIENT
  Age: 78 Year
  Sex: Female
  Weight: 60 kg

DRUGS (3)
  1. ARAVA [Concomitant]
  2. TEGRETOL [Suspect]
     Indication: FACIAL NEURALGIA
     Dosage: 400 MG, BID
     Route: 048
     Dates: start: 20060508, end: 20060522
  3. TEGRETOL [Suspect]
     Dosage: 200 MG, BID
     Route: 048
     Dates: end: 20060507

REACTIONS (7)
  - ACCIDENTAL OVERDOSE [None]
  - ASTHENIA [None]
  - DRUG LEVEL INCREASED [None]
  - DRUG PRESCRIBING ERROR [None]
  - INCORRECT DOSE ADMINISTERED [None]
  - NAUSEA [None]
  - VOMITING [None]
